FAERS Safety Report 4677464-1 (Version None)
Quarter: 2005Q2

REPORT INFORMATION
  Report Type: 
  Country: None (occurrence: None)
  Receive Date: 20050531
  Receipt Date: 20050518
  Transmission Date: 20051028
  Serious: Yes (Other)
  Sender: FDA-Public Use
  Company Number: 200514605GDDC

PATIENT
  Age: 77 Year
  Sex: Male

DRUGS (1)
  1. ARAVA [Suspect]
     Indication: ARTHRITIS
     Route: 048
     Dates: start: 20050101

REACTIONS (1)
  - BLOOD ALKALINE PHOSPHATASE INCREASED [None]
